FAERS Safety Report 7725583-5 (Version None)
Quarter: 2011Q3

REPORT INFORMATION
  Report Type: 
  Country: None (occurrence: None)
  Receive Date: 20110830
  Receipt Date: 20110321
  Transmission Date: 20111222
  Serious: Yes (Other)
  Sender: FDA-Public Use
  Company Number: GER/UKI/11/0017774

PATIENT
  Age: 68 Year

DRUGS (2)
  1. ALENDRONIC ACID [Suspect]
     Indication: OSTEOPOROSIS
     Dosage: 70 MG, 1 IN 1 WK, ORAL
     Route: 048
     Dates: start: 20100917
  2. CALFOVIT D3 [Concomitant]

REACTIONS (2)
  - ALOPECIA [None]
  - EMOTIONAL DISTRESS [None]
